FAERS Safety Report 18594897 (Version 1)
Quarter: 2020Q4

REPORT INFORMATION
  Report Type: Spontaneous
  Country: US (occurrence: US)
  Receive Date: 20201209
  Receipt Date: 20201209
  Transmission Date: 20210114
  Serious: No
  Sender: FDA-Public Use
  Company Number: US-MYLANLABS-2020M1098069

PATIENT
  Sex: Male

DRUGS (1)
  1. MOXIFLOXACIN OPHTHALMIC SOLUTION USP [Suspect]
     Active Substance: MOXIFLOXACIN
     Indication: EYE INFECTION
     Dosage: 4 DROP, QD, DAILY
     Route: 047

REACTIONS (2)
  - Off label use [Recovering/Resolving]
  - Product use complaint [Not Recovered/Not Resolved]
